FAERS Safety Report 4706049-3 (Version None)
Quarter: 2005Q2

REPORT INFORMATION
  Report Type: 
  Country: None (occurrence: None)
  Receive Date: 20050627
  Receipt Date: 20050104
  Transmission Date: 20051028
  Serious: Yes (Other)
  Sender: FDA-Public Use
  Company Number: US-JNJFOC-20030903492

PATIENT
  Age: 24 Year
  Sex: Female

DRUGS (7)
  1. FENTANYL [Suspect]
     Indication: PAIN
     Dosage: SEE IMAGE
     Route: 062
     Dates: start: 20030722, end: 20030826
  2. FENTANYL [Suspect]
     Indication: PAIN
     Dosage: SEE IMAGE
     Route: 062
     Dates: start: 20030826, end: 20030909
  3. FENTANYL [Suspect]
     Indication: PAIN
     Dosage: SEE IMAGE
     Route: 062
     Dates: start: 20030909, end: 20030911
  4. . [Concomitant]
  5. . [Concomitant]
  6. LORTAB [Concomitant]
  7. NARCAN [Concomitant]

REACTIONS (16)
  - ABNORMAL BEHAVIOUR [None]
  - ANXIETY [None]
  - BACK PAIN [None]
  - DIZZINESS [None]
  - DRUG WITHDRAWAL SYNDROME [None]
  - FATIGUE [None]
  - HYPERSOMNIA [None]
  - INSOMNIA [None]
  - MENORRHAGIA [None]
  - MYOFASCIAL PAIN SYNDROME [None]
  - NAUSEA [None]
  - ORTHOSTATIC HYPOTENSION [None]
  - PAIN [None]
  - THERAPEUTIC RESPONSE DECREASED [None]
  - TREMOR [None]
  - VOMITING [None]
